FAERS Safety Report 8557293-9 (Version None)
Quarter: 2012Q3

REPORT INFORMATION
  Report Type: 
  Country: None (occurrence: None)
  Receive Date: 20120720
  Receipt Date: 20110725
  Transmission Date: 20120928
  Serious: Yes (Death, Hospitalization)
  Sender: FDA-Public Use
  Company Number: KV201000136

PATIENT
  Age: 63 Year
  Sex: Female
  Weight: 67.6 kg

DRUGS (1)
  1. MORPHINE [Suspect]
     Indication: CANCER PAIN
     Dosage: 60 MG, BID, ORAL
     Route: 048
     Dates: start: 20080418, end: 20080420

REACTIONS (18)
  - PETECHIAE [None]
  - LIFE EXPECTANCY SHORTENED [None]
  - ACUTE MYOCARDIAL INFARCTION [None]
  - PURPURA [None]
  - DEHYDRATION [None]
  - GENERAL PHYSICAL HEALTH DETERIORATION [None]
  - THROMBOCYTOPENIA [None]
  - LUNG INFILTRATION [None]
  - RENAL CANCER [None]
  - ECCHYMOSIS [None]
  - ALTERED STATE OF CONSCIOUSNESS [None]
  - OVERDOSE [None]
  - UNRESPONSIVE TO STIMULI [None]
  - PUPIL FIXED [None]
  - PNEUMONIA [None]
  - RENAL FAILURE ACUTE [None]
  - DELIRIUM [None]
  - COMA [None]
